FAERS Safety Report 4924756-4 (Version None)
Quarter: 2006Q1

REPORT INFORMATION
  Report Type: 
  Country: None (occurrence: None)
  Receive Date: 20060127
  Receipt Date: 20051219
  Transmission Date: 20060701
  Serious: Yes (Other)
  Sender: FDA-Public Use
  Company Number: 2005171892

PATIENT
  Age: 77 Year
  Sex: Female
  Weight: 74.8435 kg

DRUGS (9)
  1. LYRICA [Suspect]
     Indication: PAIN
     Dosage: 150 MG (75 MG,2 IN 1 D)
     Dates: start: 20051217, end: 20051217
  2. LEXAPRO [Concomitant]
  3. HYDROCHLOROTHIAZIDE [Concomitant]
  4. BENICAR [Concomitant]
  5. ATENOLOL [Concomitant]
  6. LOTREL [Concomitant]
  7. ECOTRIN (ACETYLSALICYLIC ACID) [Concomitant]
  8. MULTIVITAMIN [Concomitant]
  9. CALCIUM (CALCIUM) [Concomitant]

REACTIONS (3)
  - DIFFICULTY IN WALKING [None]
  - DIZZINESS [None]
  - SLEEP DISORDER [None]
